FAERS Safety Report 6029169-2 (Version None)
Quarter: 2009Q1

REPORT INFORMATION
  Report Type: 
  Country: None (occurrence: None)
  Receive Date: 20090106
  Receipt Date: 20081224
  Transmission Date: 20090719
  Serious: No
  Sender: FDA-Public Use
  Company Number: JP-GENENTECH-272531

PATIENT
  Sex: Male

DRUGS (3)
  1. RITUXAN [Suspect]
     Indication: ANAEMIA HAEMOLYTIC AUTOIMMUNE
     Dosage: 375 MG/M2, 1/WEEK
     Route: 042
     Dates: start: 20080826
  2. PREDNISOLONE [Suspect]
     Indication: DRUG USE FOR UNKNOWN INDICATION
     Route: 048
  3. COTRIM [Suspect]
     Indication: PROPHYLAXIS
     Dosage: 2 TABLET, 3/WEEK
     Route: 048
     Dates: start: 20080709, end: 20081120

REACTIONS (1)
  - NEUTROPENIA [None]
